FAERS Safety Report 6267859-7 (Version None)
Quarter: 2009Q3

REPORT INFORMATION
  Report Type: 
  Country: None (occurrence: None)
  Receive Date: 20090714
  Receipt Date: 20090706
  Transmission Date: 20100115
  Serious: Yes (Death)
  Sender: FDA-Public Use
  Company Number: US-ELI_LILLY_AND_COMPANY-US200906001213

PATIENT
  Sex: Female
  Weight: 49.887 kg

DRUGS (13)
  1. FORTEO [Suspect]
     Indication: OSTEOPOROSIS
     Dosage: 20 UG, DAILY (1/D)
     Dates: start: 20090420
  2. ATACAND HCT [Concomitant]
  3. PRILOSEC [Concomitant]
  4. ASPIRIN [Concomitant]
  5. LIPITOR [Concomitant]
  6. NORVASC [Concomitant]
  7. VITAMIN D [Concomitant]
     Dosage: 50,000/WEEK
  8. METOPROLOL TARTRATE [Concomitant]
  9. IMDUR [Concomitant]
  10. CRESTOR [Concomitant]
  11. REGLAN [Concomitant]
  12. PLAVIX [Concomitant]
  13. SINEMET [Concomitant]

REACTIONS (1)
  - SUDDEN CARDIAC DEATH [None]
